FAERS Safety Report 17415751 (Version 3)
Quarter: 2022Q1

REPORT INFORMATION
  Report Type: Spontaneous
  Country: US (occurrence: US)
  Receive Date: 20200213
  Receipt Date: 20220327
  Transmission Date: 20220423
  Serious: No
  Sender: FDA-Public Use
  Company Number: US-SA-2020SA036009

PATIENT
  Sex: Male

DRUGS (1)
  1. KEVZARA [Suspect]
     Active Substance: SARILUMAB
     Indication: Rheumatoid arthritis
     Dosage: 200 MG, QOW
     Route: 058
     Dates: start: 20190221

REACTIONS (5)
  - Nodule [Unknown]
  - Arthralgia [Unknown]
  - Joint swelling [Unknown]
  - Unevaluable event [Unknown]
  - Condition aggravated [Unknown]
